FAERS Safety Report 6718596-3 (Version None)
Quarter: 2010Q2

REPORT INFORMATION
  Report Type: 
  Country: None (occurrence: None)
  Receive Date: 20100510
  Receipt Date: 20100427
  Transmission Date: 20101027
  Serious: Yes (Other)
  Sender: FDA-Public Use
  Company Number: GB-AMGEN-QUU409407

PATIENT
  Sex: Female
  Weight: 39.3 kg

DRUGS (3)
  1. ENBREL [Suspect]
     Indication: JUVENILE ARTHRITIS
     Route: 058
     Dates: start: 20090814
  2. ENBREL [Suspect]
     Route: 058
     Dates: start: 20070130, end: 20090813
  3. PIRITON [Concomitant]
     Indication: INJECTION SITE REACTION
     Dosage: 2 MG EVERY 1 PRN
     Route: 048
     Dates: start: 20070301

REACTIONS (3)
  - ARACHNOID CYST [None]
  - MIGRAINE [None]
  - OPTIC DISC DRUSEN [None]
